FAERS Safety Report 20044254 (Version 2)
Quarter: 2022Q1

REPORT INFORMATION
  Report Type: Spontaneous
  Country: CN (occurrence: CN)
  Receive Date: 20211108
  Receipt Date: 20220110
  Transmission Date: 20220424
  Serious: Yes (Other)
  Sender: FDA-Public Use
  Company Number: CN-002147023-NVSC2021CN247634

PATIENT

DRUGS (3)
  1. RUXOLITINIB [Suspect]
     Active Substance: RUXOLITINIB
     Indication: Acute graft versus host disease
     Dosage: 2.5 MG, BID
     Route: 048
     Dates: start: 20180705, end: 20180814
  2. RUXOLITINIB [Suspect]
     Active Substance: RUXOLITINIB
     Dosage: 2.5 MG, QD
     Route: 048
     Dates: start: 20180814, end: 20180831
  3. CYCLOSPORINE [Concomitant]
     Active Substance: CYCLOSPORINE
     Indication: Product used for unknown indication
     Dosage: 25 MG, Q12H
     Route: 048

REACTIONS (3)
  - Disease recurrence [Unknown]
  - Acute graft versus host disease [Unknown]
  - Product use issue [Unknown]

NARRATIVE: CASE EVENT DATE: 20180814
